FAERS Safety Report 7407060-4 (Version None)
Quarter: 2011Q2

REPORT INFORMATION
  Report Type: 
  Country: None (occurrence: None)
  Receive Date: 20110411
  Receipt Date: 20110404
  Transmission Date: 20111010
  Serious: Yes (Hospitalization, Other)
  Sender: FDA-Public Use
  Company Number: NL-ROCHE-764434

PATIENT
  Sex: Female
  Weight: 65 kg

DRUGS (7)
  1. SOTALOL [Concomitant]
  2. METHOTREXATE [Concomitant]
     Route: 048
  3. PROXEN [Concomitant]
  4. PREDNISONE [Concomitant]
  5. SINTROM [Concomitant]
  6. AMOXICILLINE [Concomitant]
  7. ROACTEMRA [Suspect]
     Indication: RHEUMATOID ARTHRITIS
     Dosage: 520MG
     Route: 042
     Dates: start: 20090101, end: 20110101

REACTIONS (4)
  - URINARY TRACT INFECTION [None]
  - WOUND INFECTION [None]
  - POLYNEUROPATHY [None]
  - VASCULITIS [None]
